FAERS Safety Report 5284764-3 (Version None)
Quarter: 2007Q2

REPORT INFORMATION
  Report Type: 
  Country: None (occurrence: None)
  Receive Date: 20070403
  Receipt Date: 20070329
  Transmission Date: 20071010
  Serious: Yes (Hospitalization)
  Sender: FDA-Public Use
  Company Number: US-MERCK-0703USA05520

PATIENT
  Age: 53 Year
  Sex: Male

DRUGS (2)
  1. SINGULAIR [Suspect]
     Indication: ASTHMA
     Route: 048
     Dates: start: 20000101, end: 20050101
  2. PREDNISONE [Concomitant]
     Indication: ASTHMA
     Route: 065

REACTIONS (4)
  - ALLERGIC GRANULOMATOUS ANGIITIS [None]
  - ANTIPHOSPHOLIPID ANTIBODIES [None]
  - DRY GANGRENE [None]
  - RENAL INFARCT [None]
